FAERS Safety Report 7811326-3 (Version None)
Quarter: 2011Q4

REPORT INFORMATION
  Report Type: 
  Country: None (occurrence: None)
  Receive Date: 20111013
  Receipt Date: 20111004
  Transmission Date: 20120403
  Serious: Yes (Disabling)
  Sender: FDA-Public Use
  Company Number: DE-ASTRAZENECA-2011SE59433

PATIENT
  Age: 68 Year
  Sex: Female

DRUGS (6)
  1. SEROQUEL XR [Suspect]
     Indication: SUICIDE ATTEMPT
     Dosage: 200 MG IN THE EVENING AND 50 MG IN THE MORNING
     Route: 048
     Dates: start: 20110801
  2. VENLAFAXINE HYDROCHLORIDE [Concomitant]
     Indication: SUICIDE ATTEMPT
     Route: 048
  3. PANTOZOLE [Concomitant]
     Indication: PROPHYLAXIS AGAINST GASTROINTESTINAL ULCER
     Route: 048
  4. ZOLPIDEM [Concomitant]
     Route: 048
  5. LORAZEPAM [Concomitant]
     Indication: SUICIDE ATTEMPT
     Route: 048
  6. LASIX [Concomitant]
     Indication: OEDEMA
     Route: 048

REACTIONS (6)
  - VISION BLURRED [None]
  - SPEECH DISORDER [None]
  - RESPIRATORY DISORDER [None]
  - MUSCULOSKELETAL STIFFNESS [None]
  - OEDEMA PERIPHERAL [None]
  - WEIGHT INCREASED [None]
